FAERS Safety Report 5644535-2 (Version None)
Quarter: 2008Q1

REPORT INFORMATION
  Report Type: 
  Country: None (occurrence: None)
  Receive Date: 20080229
  Receipt Date: 20070831
  Transmission Date: 20080703
  Serious: No
  Sender: FDA-Public Use
  Company Number: A0640280A

PATIENT
  Age: 59 Year
  Sex: Female

DRUGS (7)
  1. VALTREX [Suspect]
     Indication: INFECTIOUS MONONUCLEOSIS
     Dosage: 500MG THREE TIMES PER DAY
     Route: 048
     Dates: start: 20070101, end: 20070824
  2. ACYCLOVIR [Suspect]
     Dosage: 800MG FOUR TIMES PER DAY
     Dates: start: 20061001, end: 20061201
  3. CYMBALTA [Concomitant]
  4. TOPROL-XL [Concomitant]
  5. ESTROPIPATE [Concomitant]
  6. PROVIGIL [Concomitant]
  7. BENICAR HCT [Concomitant]

REACTIONS (11)
  - FATIGUE [None]
  - HEADACHE [None]
  - HERPES VIRUS INFECTION [None]
  - ILL-DEFINED DISORDER [None]
  - MEMORY IMPAIRMENT [None]
  - NERVOUSNESS [None]
  - OFF LABEL USE [None]
  - PAIN [None]
  - PYREXIA [None]
  - SOMNOLENCE [None]
  - TREMOR [None]
